FAERS Safety Report 8744353 (Version 3)
Quarter: 2012Q4

REPORT INFORMATION
  Report Type: 
  Country: JP (occurrence: JP)
  Receive Date: 20120825
  Receipt Date: 20121109
  Transmission Date: 20130627
  Serious: Yes (Hospitalization)
  Sender: FDA-Public Use
  Company Number: JP-009507513-1208JPN008822

PATIENT
  Age: 40 Year
  Sex: Female

DRUGS (5)
  1. PEGINTRON [Suspect]
     Indication: HEPATITIS C
     Dosage: 80 Microgram, qw
     Route: 058
     Dates: start: 20120629, end: 20120713
  2. REBETOL [Suspect]
     Indication: HEPATITIS C
     Dosage: 200 mg, bid
     Route: 048
     Dates: start: 20120629, end: 20120714
  3. PROMAC (POLAPREZINC) [Suspect]
     Indication: HEPATITIS C
     Dosage: 75 mg, bid
     Route: 048
     Dates: start: 20120629, end: 20120714
  4. LOXONIN [Suspect]
     Indication: PYREXIA
     Dosage: Dose: daily dose unknown
     Route: 048
     Dates: start: 20120629, end: 20120714
  5. URSO [Concomitant]
     Indication: HEPATIC FUNCTION ABNORMAL
     Dosage: 200 mg, tid
     Route: 048
     Dates: start: 20120423, end: 20120705

REACTIONS (1)
  - Infectious pleural effusion [Recovering/Resolving]
